FAERS Safety Report 10046435 (Version 1)
Quarter: 2014Q1

REPORT INFORMATION
  Report Type: Spontaneous
  Country: US (occurrence: US)
  Receive Date: 20140331
  Receipt Date: 20140331
  Transmission Date: 20141002
  Serious: No
  Sender: FDA-Public Use
  Company Number: US-BIOGENIDEC-2014BI027662

PATIENT
  Sex: Female
  Weight: 95 kg

DRUGS (6)
  1. TECFIDERA [Suspect]
     Indication: MULTIPLE SCLEROSIS
     Route: 048
     Dates: start: 201402
  2. ADVIL [Concomitant]
  3. BIOTIN [Concomitant]
  4. ECOTRIN [Concomitant]
  5. SUMATRIPTAN [Concomitant]
  6. VIT D3 [Concomitant]

REACTIONS (3)
  - Depression [Not Recovered/Not Resolved]
  - Flushing [Not Recovered/Not Resolved]
  - Gastrointestinal disorder [Not Recovered/Not Resolved]
